FAERS Safety Report 8174329-8 (Version None)
Quarter: 2012Q1

REPORT INFORMATION
  Report Type: 
  Country: None (occurrence: None)
  Receive Date: 20120229
  Receipt Date: 20120224
  Transmission Date: 20120608
  Serious: Yes (Other)
  Sender: FDA-Public Use
  Company Number: US-BAYER-2012-019615

PATIENT
  Sex: Male
  Weight: 68.027 kg

DRUGS (6)
  1. STAXYN [Suspect]
     Indication: ERECTILE DYSFUNCTION
     Dosage: 1 DF, UNK
     Route: 048
  2. IBUPROFEN [Concomitant]
  3. AMLODIPINE BESYLATE [Concomitant]
     Dosage: 1 DF, BID
  4. BENICAR [Concomitant]
     Dosage: 20 MG, QD
  5. VICODIN [Concomitant]
     Indication: MYALGIA
     Dosage: CHEWED PART OF A 5 MG
  6. ALCOHOL [Concomitant]
     Dosage: CONSUMER HAD ONE BEER WITH 2 OUNCES OF VODKA WITH FRESH GRAPEFRUIT JUICE PRIOR TO TAKING STAXYN

REACTIONS (3)
  - BLOOD PRESSURE DECREASED [None]
  - LOSS OF CONSCIOUSNESS [None]
  - NEUROMYOPATHY [None]
